FAERS Safety Report 9016322 (Version 2)
Quarter: 2013Q3

REPORT INFORMATION
  Report Type: Spontaneous
  Country: JP (occurrence: JP)
  Receive Date: 20130116
  Receipt Date: 20130930
  Transmission Date: 20140515
  Serious: Yes (Other)
  Sender: FDA-Public Use
  Company Number: JP-009507513-1212JPN003875

PATIENT
  Age: 74 Year
  Sex: Male
  Weight: 58 kg

DRUGS (10)
  1. BRIDION INTRAVENOUS 200MG [Suspect]
     Indication: NEUROMUSCULAR BLOCKADE REVERSAL
     Dosage: 200 MG, ONCE
     Route: 042
     Dates: start: 20121127, end: 20121127
  2. ESLAX [Concomitant]
     Indication: MUSCLE RELAXANT THERAPY
     Dosage: 50 MG, ONCE
     Route: 042
     Dates: start: 20121127, end: 20121127
  3. DEXART [Concomitant]
     Indication: OEDEMA
     Dosage: 6.6 MG, ONCE
     Route: 042
     Dates: start: 20121127, end: 20121127
  4. PROPOFOL [Concomitant]
     Indication: SEDATION
     Dosage: 120 MG, ONCE
     Route: 042
     Dates: start: 20121127, end: 20121127
  5. ULTIVA [Concomitant]
     Indication: ANALGESIC THERAPY
     Dosage: 1.5 MG, ONCE PERPETUATION
     Route: 042
     Dates: start: 20121127, end: 20121127
  6. FENTANYL CITRATE [Concomitant]
     Indication: ANALGESIC THERAPY
     Dosage: DAILY DOSAGE UNKNOWN
     Route: 042
     Dates: start: 20121127, end: 20121127
  7. EPHEDRINE HYDROCHLORIDE [Concomitant]
     Indication: BLOOD PRESSURE MANAGEMENT
     Dosage: 5 MG, QID
     Route: 042
     Dates: start: 20121127, end: 20121127
  8. INOVAN (DOPAMINE HYDROCHLORIDE) [Concomitant]
     Indication: BLOOD PRESSURE MANAGEMENT
     Dosage: DAILY DOSE UNKNOWN
     Route: 042
     Dates: start: 20121127, end: 20121127
  9. ROPION [Concomitant]
     Indication: ANALGESIC THERAPY
     Dosage: 50 MG, ONCE
     Route: 042
     Dates: start: 20121127, end: 20121127
  10. VICCILLIN [Concomitant]
     Indication: ANTIBIOTIC PROPHYLAXIS
     Dosage: DAILY DOSAGE UNKNOWN, ONCE
     Route: 042
     Dates: start: 20121127, end: 20121127

REACTIONS (1)
  - Generalised erythema [Recovered/Resolved]
